FAERS Safety Report 13362867 (Version 1)
Quarter: 2017Q1

REPORT INFORMATION
  Report Type: Spontaneous
  Country: US (occurrence: US)
  Receive Date: 20170323
  Receipt Date: 20170323
  Transmission Date: 20170429
  Serious: No
  Sender: FDA-Public Use
  Company Number: US-GLAXOSMITHKLINE-US2017040708

PATIENT
  Sex: Female
  Weight: 57.14 kg

DRUGS (1)
  1. DICLOFENAC SODIUM GEL [Suspect]
     Active Substance: DICLOFENAC SODIUM
     Indication: OSTEOARTHRITIS
     Dosage: UNK
     Dates: start: 20170206, end: 20170306

REACTIONS (2)
  - Insomnia [Unknown]
  - Drug ineffective [Unknown]
